FAERS Safety Report 5505281-9 (Version None)
Quarter: 2007Q4

REPORT INFORMATION
  Report Type: 
  Country: None (occurrence: None)
  Receive Date: 20071102
  Receipt Date: 20071024
  Transmission Date: 20080405
  Serious: Yes (Hospitalization)
  Sender: FDA-Public Use
  Company Number: JP-JNJFOC-20070304729

PATIENT
  Sex: Female

DRUGS (6)
  1. CRAVIT [Suspect]
     Indication: CYSTITIS
     Route: 048
     Dates: start: 20060807, end: 20060814
  2. RABEPRAZOLE SODIUM [Concomitant]
     Indication: GASTRIC ULCER
     Route: 065
  3. TRILAFON [Concomitant]
     Indication: GASTRIC ULCER
     Route: 065
  4. SUCRALFATE [Concomitant]
     Indication: GASTRIC ULCER
     Route: 065
  5. MARZULENE [Concomitant]
     Indication: GASTRIC ULCER
     Route: 065
  6. CAMOSTATE [Concomitant]
     Route: 065

REACTIONS (2)
  - PLATELET COUNT DECREASED [None]
  - PSEUDOMEMBRANOUS COLITIS [None]
